FAERS Safety Report 8969651 (Version 1)
Quarter: 2012Q4

REPORT INFORMATION
  Report Type: 
  Country: IR (occurrence: IR)
  Receive Date: 20121217
  Receipt Date: 20121217
  Transmission Date: 20130627
  Serious: Yes (Other)
  Sender: FDA-Public Use
  Company Number: IR-MYLANLABS-2012S1025020

PATIENT

DRUGS (2)
  1. MELPHALAN [Suspect]
     Indication: RETINOBLASTOMA UNILATERAL
     Dosage: 10 microg in 0.05mL
     Route: 031
  2. BEVACIZUMAB [Concomitant]
     Indication: RETINOBLASTOMA UNILATERAL
     Route: 031

REACTIONS (1)
  - Retinal haemorrhage [Unknown]
